FAERS Safety Report 5666689-4 (Version None)
Quarter: 2008Q1

REPORT INFORMATION
  Report Type: 
  Country: None (occurrence: None)
  Receive Date: 20080315
  Receipt Date: 20071228
  Transmission Date: 20080703
  Serious: No
  Sender: FDA-Public Use
  Company Number: US-ABBOTT-07P-163-0431510-00

PATIENT
  Sex: Female
  Weight: 44.038 kg

DRUGS (12)
  1. HUMIRA [Suspect]
     Indication: ANKYLOSING SPONDYLITIS
     Route: 058
     Dates: start: 20070801, end: 20070901
  2. HUMIRA [Suspect]
     Indication: CROHN'S DISEASE
     Dates: start: 20070901, end: 20071001
  3. HUMIRA [Suspect]
     Dates: start: 20071223
  4. ATENOLOL [Concomitant]
     Indication: DRUG USE FOR UNKNOWN INDICATION
  5. CYANOCOBALAMIN [Concomitant]
     Indication: DRUG USE FOR UNKNOWN INDICATION
  6. CITALOPRAM HYDROBROMIDE [Concomitant]
     Indication: DRUG USE FOR UNKNOWN INDICATION
  7. CLONAZEPAM [Concomitant]
     Indication: DRUG USE FOR UNKNOWN INDICATION
  8. ALBUTEROL [Concomitant]
     Indication: DRUG USE FOR UNKNOWN INDICATION
  9. PRESCRIPTION ZINC [Concomitant]
     Indication: DRUG USE FOR UNKNOWN INDICATION
  10. PRESCRIPTION VITAMIN D [Concomitant]
     Indication: DRUG USE FOR UNKNOWN INDICATION
  11. MULTIVITAMIN OTC [Concomitant]
     Indication: DRUG USE FOR UNKNOWN INDICATION
  12. IRON OTC [Concomitant]
     Indication: DRUG USE FOR UNKNOWN INDICATION

REACTIONS (9)
  - COUGH [None]
  - DRUG INEFFECTIVE [None]
  - LARYNGITIS [None]
  - NASAL CONGESTION [None]
  - NASOPHARYNGITIS [None]
  - NAUSEA [None]
  - PYREXIA [None]
  - RESPIRATORY TRACT CONGESTION [None]
  - URTICARIA [None]
